FAERS Safety Report 8592406-4 (Version None)
Quarter: 2012Q3

REPORT INFORMATION
  Report Type: 
  Country: None (occurrence: None)
  Receive Date: 20120814
  Receipt Date: 20120807
  Transmission Date: 20120928
  Serious: Yes (Other)
  Sender: FDA-Public Use
  Company Number: US-PFIZER INC-2012193352

PATIENT
  Age: 27 Year
  Sex: Female

DRUGS (6)
  1. FLUOROURACIL [Suspect]
     Dosage: 500 MG ON DAY 8
     Route: 042
  2. METHOTREXATE SODIUM [Concomitant]
     Indication: BREAST CANCER
     Dosage: 50 MG (36 MG/M2) ON DAY 1 AND 8
     Route: 042
  3. CYTOXAN [Concomitant]
     Dosage: 50 MG, DAILY FOR 14 DAYS
  4. CYTOXAN [Concomitant]
     Indication: BREAST CANCER
     Dosage: 150 MG, DAILY FOR 14 DAYS
     Route: 048
  5. FLUOROURACIL [Suspect]
     Dosage: 500 MG, ON DAYS 1 AND 8
     Route: 042
  6. FLUOROURACIL [Suspect]
     Indication: BREAST CANCER
     Dosage: 800 MG (570 MG/M2), ON DAY 1
     Route: 042

REACTIONS (12)
  - LEUKOPENIA [None]
  - ALOPECIA [None]
  - WEIGHT DECREASED [None]
  - STOMATITIS [None]
  - PYREXIA [None]
  - DEPRESSED LEVEL OF CONSCIOUSNESS [None]
  - DIARRHOEA [None]
  - THROMBOCYTOPENIA [None]
  - SPEECH DISORDER [None]
  - CEREBELLAR ATAXIA [None]
  - ACQUIRED PYRIMIDINE METABOLISM DISORDER [None]
  - CONFUSIONAL STATE [None]
